FAERS Safety Report 7296884-2 (Version None)
Quarter: 2011Q1

REPORT INFORMATION
  Report Type: 
  Country: None (occurrence: None)
  Receive Date: 20110216
  Receipt Date: 20110208
  Transmission Date: 20110831
  Serious: Yes (Other)
  Sender: FDA-Public Use
  Company Number: US-JNJFOC-20110202795

PATIENT
  Age: 56 Year
  Sex: Female
  Weight: 106.6 kg

DRUGS (7)
  1. TYLENOL-500 [Suspect]
     Route: 048
  2. CRESTOR [Concomitant]
     Indication: BLOOD CHOLESTEROL INCREASED
     Route: 048
  3. CYMBALTA [Concomitant]
     Indication: DEPRESSION
     Route: 048
  4. BYETTA [Concomitant]
     Indication: DIABETES MELLITUS
     Route: 048
  5. TYLENOL-500 [Suspect]
     Indication: ARTHRALGIA
     Dosage: AS NEEDED ONLY
     Route: 048
  6. ZETIA [Concomitant]
     Indication: BLOOD CHOLESTEROL INCREASED
     Route: 048
  7. TRIAMTERENE AND HYDROCHLOROTHIAZIDE [Concomitant]
     Indication: HYPERTENSION
     Route: 048

REACTIONS (3)
  - FLATULENCE [None]
  - RECTAL HAEMORRHAGE [None]
  - MUSCLE SPASMS [None]
